FAERS Safety Report 25850583 (Version 1)
Quarter: 2025Q3

REPORT INFORMATION
  Report Type: Report from Study
  Country: US (occurrence: US)
  Receive Date: 20250926
  Receipt Date: 20250926
  Transmission Date: 20251020
  Serious: No
  Sender: DR REDDYS
  Company Number: US-DRL-USA-USA/2025/09/014162

PATIENT
  Sex: Male

DRUGS (1)
  1. JAVYGTOR [Suspect]
     Active Substance: SAPROPTERIN DIHYDROCHLORIDE
     Indication: Product used for unknown indication
     Route: 048
     Dates: start: 20250903

REACTIONS (1)
  - Tic [Unknown]
